FAERS Safety Report 15194352 (Version 3)
Quarter: 2018Q3

REPORT INFORMATION
  Report Type: Spontaneous
  Country: IT (occurrence: IT)
  Receive Date: 20180725
  Receipt Date: 20180926
  Transmission Date: 20181010
  Serious: Yes (Hospitalization, Other)
  Sender: FDA-Public Use
  Company Number: IT-MYLANLABS-2018M1048167

PATIENT
  Age: 70 Year
  Sex: Female

DRUGS (2)
  1. ALENDRONATE [Suspect]
     Active Substance: ALENDRONATE SODIUM
     Indication: OSTEOPOROSIS
     Dosage: 70 MG, QW
     Dates: start: 2010, end: 201502
  2. ALENDRONATE [Suspect]
     Active Substance: ALENDRONATE SODIUM
     Dosage: UNK
     Route: 048

REACTIONS (16)
  - Mouth swelling [Recovered/Resolved]
  - Osteonecrosis of jaw [Recovered/Resolved]
  - Oral mucosa erosion [Recovered/Resolved]
  - X-ray abnormal [Recovered/Resolved]
  - Oral cavity fistula [Recovered/Resolved]
  - Bone erosion [Recovered/Resolved]
  - Bone density increased [Recovered/Resolved]
  - Impaired healing [Recovered/Resolved]
  - Excessive granulation tissue [Recovered/Resolved]
  - Bone disorder [Recovered/Resolved]
  - Procedural pain [Recovered/Resolved]
  - Cyst [Recovered/Resolved]
  - Abscess oral [Recovered/Resolved]
  - Osteonecrosis [Recovered/Resolved]
  - Tooth loss [Recovered/Resolved]
  - Osteolysis [Recovered/Resolved]

NARRATIVE: CASE EVENT DATE: 201311
